FAERS Safety Report 18006281 (Version 1)
Quarter: 2020Q3

REPORT INFORMATION
  Report Type: Spontaneous
  Country: US (occurrence: US)
  Receive Date: 20200709
  Receipt Date: 20200709
  Transmission Date: 20201103
  Serious: No
  Sender: FDA-Public Use
  Company Number: None

PATIENT

DRUGS (1)
  1. SERTRALINE HCL [Suspect]
     Active Substance: SERTRALINE HYDROCHLORIDE

REACTIONS (9)
  - Anxiety [None]
  - Night sweats [None]
  - Mood swings [None]
  - Product dispensing error [None]
  - Incorrect dose administered [None]
  - Product colour issue [None]
  - Insomnia [None]
  - Panic attack [None]
  - Product label issue [None]

NARRATIVE: CASE EVENT DATE: 2020
